FAERS Safety Report 8152262-5 (Version None)
Quarter: 2012Q1

REPORT INFORMATION
  Report Type: 
  Country: None (occurrence: None)
  Receive Date: 20120221
  Receipt Date: 20120213
  Transmission Date: 20120608
  Serious: Yes (Hospitalization)
  Sender: FDA-Public Use
  Company Number: US-BAYER-2011-105677

PATIENT
  Age: 18 Year
  Sex: Female
  Weight: 54.422 kg

DRUGS (9)
  1. YAZ [Suspect]
     Indication: MENSTRUAL CYCLE MANAGEMENT
  2. LORTAB [Concomitant]
     Dosage: 5/500MG
     Dates: start: 20090926
  3. YASMIN [Suspect]
     Indication: MENSTRUAL CYCLE MANAGEMENT
  4. YAZ [Suspect]
     Indication: CONTRACEPTION
     Dosage: UNK
     Route: 048
     Dates: start: 20071101, end: 20110901
  5. MOBIC [Concomitant]
     Dosage: 15 MG, UNK
     Dates: start: 20090914
  6. DROSPIRENONE AND ETHINYL ESTRADIOL [Suspect]
     Indication: CONTRACEPTION
     Dosage: UNK
     Dates: start: 20071101, end: 20110901
  7. YASMIN [Suspect]
     Indication: CONTRACEPTION
     Dosage: UNK
     Route: 048
     Dates: start: 20071101, end: 20110901
  8. ZITHROMAX [Concomitant]
     Dosage: UNK
     Dates: start: 20090914
  9. ALLEGRA [Concomitant]
     Dosage: 180 MG, UNK
     Dates: start: 20090914

REACTIONS (4)
  - INJURY [None]
  - GALLBLADDER DISORDER [None]
  - EMOTIONAL DISTRESS [None]
  - PAIN [None]
